FAERS Safety Report 6101628-3 (Version None)
Quarter: 2009Q1

REPORT INFORMATION
  Report Type: 
  Country: None (occurrence: None)
  Receive Date: 20090227
  Receipt Date: 20080710
  Transmission Date: 20090719
  Serious: No
  Sender: FDA-Public Use
  Company Number: 261925

PATIENT
  Age: 15 Year
  Sex: Male
  Weight: 76 kg

DRUGS (4)
  1. NUTROPIN [Suspect]
     Indication: GROWTH RETARDATION
     Dosage: 3.75 MG, 7/WEEK, SUBCUTANEOUS
     Route: 058
     Dates: start: 20030711
  2. PULMICORT [Concomitant]
  3. SINGULAIR [Concomitant]
  4. MULTI-VITAMINS [Concomitant]

REACTIONS (1)
  - BONE DEVELOPMENT ABNORMAL [None]
